FAERS Safety Report 19441449 (Version 7)
Quarter: 2022Q4

REPORT INFORMATION
  Report Type: Report from Study
  Country: AU (occurrence: AU)
  Receive Date: 20210621
  Receipt Date: 20221114
  Transmission Date: 20230113
  Serious: No
  Sender: FDA-Public Use
  Company Number: AU-BRISTOL-MYERS SQUIBB COMPANY-BMS-2021-053519

PATIENT
  Sex: Male

DRUGS (8)
  1. OPDIVO [Suspect]
     Active Substance: NIVOLUMAB
     Indication: Malignant melanoma
     Dosage: 480 MILLIGRAM, Q4WK?OPDIVO (NIVOLUMAB) 100MG BATCH: ABQ8777 EXP: 12/22 X 4 VIALS?OPDIVO (NIVOLUMAB)
     Route: 042
     Dates: start: 20200702, end: 20210511
  2. OPDIVO [Suspect]
     Active Substance: NIVOLUMAB
     Route: 065
  3. CANDESARTAN CILEXETIL [Concomitant]
     Active Substance: CANDESARTAN CILEXETIL
     Indication: Hypertension
     Dosage: 16 MILLIGRAM, QD
     Route: 048
     Dates: start: 2010
  4. ROSUVASTATIN [Concomitant]
     Active Substance: ROSUVASTATIN
     Indication: Blood cholesterol increased
     Dosage: 20 MILLIGRAM, QD
     Route: 048
     Dates: start: 2010
  5. ALBUTEROL [Concomitant]
     Active Substance: ALBUTEROL
     Indication: Asthma
     Dosage: 1 PUFF, PRN, (200 DOSE)
     Route: 065
     Dates: start: 1973
  6. ACETAMINOPHEN [Concomitant]
     Active Substance: ACETAMINOPHEN
     Indication: Back pain
     Dosage: 1 GRAM, QD
     Route: 048
     Dates: start: 20200730, end: 20200730
  7. LORATADINE [Concomitant]
     Active Substance: LORATADINE
     Indication: Back pain
     Dosage: 10 MILLIGRAM, QD
     Route: 048
     Dates: start: 20200730, end: 20200730
  8. METAMUCIL THERAPY FOR REGULARITY [Concomitant]
     Active Substance: PSYLLIUM HUSK
     Indication: Constipation
     Dosage: 0.4 GRAM, PRN
     Route: 048
     Dates: start: 20200730

REACTIONS (3)
  - Fatigue [Recovered/Resolved]
  - Pruritus [Recovered/Resolved]
  - Rash [Recovered/Resolved]

NARRATIVE: CASE EVENT DATE: 20201005
